FAERS Safety Report 11335009 (Version 5)
Quarter: 2016Q1

REPORT INFORMATION
  Report Type: Report from Study
  Country: DE (occurrence: DE)
  Receive Date: 20150804
  Receipt Date: 20160322
  Transmission Date: 20160525
  Serious: Yes (Hospitalization, Other)
  Sender: FDA-Public Use
  Company Number: DE-ROCHE-ITM201411IM007553

PATIENT
  Age: 56 Year
  Sex: Male
  Weight: 113 kg

DRUGS (1)
  1. ESBRIET [Suspect]
     Active Substance: PIRFENIDONE
     Indication: IDIOPATHIC PULMONARY FIBROSIS
     Route: 048
     Dates: start: 20140827

REACTIONS (9)
  - Thrombosis [Unknown]
  - Peripheral swelling [Unknown]
  - Inflammation [Unknown]
  - Phlebitis [Unknown]
  - Wound [Unknown]
  - Erythema [Unknown]
  - Deep vein thrombosis [Recovered/Resolved with Sequelae]
  - Diabetic ulcer [Unknown]
  - Haematochezia [Recovered/Resolved]

NARRATIVE: CASE EVENT DATE: 20141110
